FAERS Safety Report 15689070 (Version 1)
Quarter: 2018Q4

REPORT INFORMATION
  Report Type: Spontaneous
  Country: US (occurrence: US)
  Receive Date: 20181121
  Receipt Date: 20181121
  Transmission Date: 20190205
  Serious: Yes (Hospitalization)
  Sender: FDA-Public Use
  Company Number: None

PATIENT
  Age: 61 Year
  Sex: Female
  Weight: 118.8 kg

DRUGS (3)
  1. LENALIDOMIDE (CC-5013) [Suspect]
     Active Substance: LENALIDOMIDE
     Dates: end: 20181117
  2. VELCADE [Suspect]
     Active Substance: BORTEZOMIB
     Dates: end: 20181113
  3. DEXAMETHASONE. [Suspect]
     Active Substance: DEXAMETHASONE
     Dates: end: 20181114

REACTIONS (6)
  - Dyspnoea [None]
  - Dizziness [None]
  - Atelectasis [None]
  - Non-cardiac chest pain [None]
  - Chest pain [None]
  - Scar [None]

NARRATIVE: CASE EVENT DATE: 20181116
